FAERS Safety Report 8886179 (Version 1)
Quarter: 2012Q4

REPORT INFORMATION
  Report Type: 
  Country: AR (occurrence: AR)
  Receive Date: 20121105
  Receipt Date: 20121105
  Transmission Date: 20130627
  Serious: Yes (Death, Hospitalization)
  Sender: FDA-Public Use
  Company Number: AR-B.I. PHARMACEUTICALS,INC./RIDGEFIELD-2012-RA-00333RA

PATIENT
  Age: 65 Year
  Sex: Female

DRUGS (1)
  1. PRADAXA [Suspect]
     Indication: ORTHOPAEDIC PROCEDURE
     Dosage: 220 mg
     Route: 048
     Dates: start: 2010, end: 2010

REACTIONS (4)
  - Sepsis [Fatal]
  - Pelvic venous thrombosis [Unknown]
  - Skin ulcer [Unknown]
  - Post thrombotic syndrome [Unknown]
